FAERS Safety Report 16396300 (Version 1)
Quarter: 2019Q2

REPORT INFORMATION
  Report Type: Spontaneous
  Country: US (occurrence: US)
  Receive Date: 20190605
  Receipt Date: 20190605
  Transmission Date: 20190711
  Serious: No
  Sender: FDA-Public Use
  Company Number: US-009507513-1906USA001150

PATIENT
  Age: 18 Year
  Sex: Female
  Weight: 79.82 kg

DRUGS (2)
  1. NEXPLANON [Suspect]
     Active Substance: ETONOGESTREL
     Indication: CONTRACEPTION
     Dosage: 1 IMPLANT, LEFT
     Route: 059
  2. IBUPROFEN. [Concomitant]
     Active Substance: IBUPROFEN

REACTIONS (4)
  - Mood swings [Not Recovered/Not Resolved]
  - Amenorrhoea [Recovered/Resolved]
  - Malaise [Not Recovered/Not Resolved]
  - Menstrual disorder [Not Recovered/Not Resolved]
